FAERS Safety Report 7280240-7 (Version None)
Quarter: 2011Q1

REPORT INFORMATION
  Report Type: 
  Country: None (occurrence: None)
  Receive Date: 20110208
  Receipt Date: 20110131
  Transmission Date: 20110831
  Serious: Yes (Other)
  Sender: FDA-Public Use
  Company Number: US-AMGEN-USASP2011005997

PATIENT
  Age: 53 Year
  Sex: Female

DRUGS (1)
  1. ENBREL [Suspect]
     Indication: RHEUMATOID ARTHRITIS
     Dosage: 50 MG, QWK
     Dates: start: 20030221, end: 20110119

REACTIONS (10)
  - SUICIDAL IDEATION [None]
  - CRYING [None]
  - ANGINA PECTORIS [None]
  - TYPE 2 DIABETES MELLITUS [None]
  - ANGER [None]
  - RHEUMATOID ARTHRITIS [None]
  - DEPRESSION [None]
  - INSOMNIA [None]
  - WEIGHT LOSS DIET [None]
  - HYPERTENSION [None]
